FAERS Safety Report 16571893 (Version 1)
Quarter: 2019Q3

REPORT INFORMATION
  Report Type: Spontaneous
  Country: US (occurrence: US)
  Receive Date: 20190713
  Receipt Date: 20190713
  Transmission Date: 20191004
  Serious: Yes (Hospitalization, Disabling)
  Sender: FDA-Public Use
  Company Number: None

PATIENT
  Age: 47 Year
  Sex: Female
  Weight: 60.3 kg

DRUGS (1)
  1. OCREVUS [Suspect]
     Active Substance: OCRELIZUMAB
     Indication: MULTIPLE SCLEROSIS
     Dosage: ?          OTHER FREQUENCY:6 MONTH CHEMO;OTHER ROUTE:INFUSION?
     Dates: start: 20170716, end: 20190713

REACTIONS (22)
  - Rash [None]
  - Emotional disorder [None]
  - Dry skin [None]
  - Infusion related reaction [None]
  - Irritability [None]
  - Suicidal ideation [None]
  - Immune system disorder [None]
  - Infection [None]
  - General physical health deterioration [None]
  - Burning sensation [None]
  - Impaired healing [None]
  - Sepsis [None]
  - Disturbance in attention [None]
  - Anger [None]
  - Pruritus [None]
  - Pain [None]
  - Dyspnoea [None]
  - Cystitis [None]
  - Wound [None]
  - Wound abscess [None]
  - Asthenia [None]
  - Urticaria [None]

NARRATIVE: CASE EVENT DATE: 20180628
